FAERS Safety Report 6921865-5 (Version None)
Quarter: 2010Q3

REPORT INFORMATION
  Report Type: 
  Country: None (occurrence: None)
  Receive Date: 20100812
  Receipt Date: 20100810
  Transmission Date: 20110219
  Serious: Yes (Disabling)
  Sender: FDA-Public Use
  Company Number: US-BRISTOL-MYERS SQUIBB COMPANY-15233687

PATIENT
  Age: 83 Year
  Sex: Female

DRUGS (3)
  1. COUMADIN [Suspect]
     Indication: ATRIAL FIBRILLATION
     Dosage: THERAPY ONGOING.
     Route: 065
  2. REVLIMID [Suspect]
     Indication: MULTIPLE MYELOMA
     Dosage: DURATION OF THERAPY =1 YEAR
     Route: 048
     Dates: start: 20081201, end: 20100630
  3. PREDNISONE TAB [Concomitant]

REACTIONS (2)
  - EPISTAXIS [None]
  - RHINORRHOEA [None]
